FAERS Safety Report 15577930 (Version 6)
Quarter: 2020Q3

REPORT INFORMATION
  Report Type: Spontaneous
  Country: US (occurrence: US)
  Receive Date: 20181102
  Receipt Date: 20200921
  Transmission Date: 20201102
  Serious: Yes (Other)
  Sender: FDA-Public Use
  Company Number: US-PFIZER INC-2018450234

PATIENT
  Age: 76 Year
  Sex: Female

DRUGS (1)
  1. XELJANZ XR [Suspect]
     Active Substance: TOFACITINIB CITRATE
     Indication: RHEUMATOID ARTHRITIS
     Dosage: UNK

REACTIONS (7)
  - Product dose omission in error [Unknown]
  - Fall [Unknown]
  - Arthritis [Unknown]
  - Pain [Unknown]
  - Pneumonia [Unknown]
  - Gait inability [Unknown]
  - Condition aggravated [Unknown]
